FAERS Safety Report 9193413 (Version 4)
Quarter: 2013Q4

REPORT INFORMATION
  Report Type: Spontaneous
  Country: SE (occurrence: SE)
  Receive Date: 20130327
  Receipt Date: 20131017
  Transmission Date: 20140711
  Serious: Yes (Life-Threatening, Hospitalization)
  Sender: FDA-Public Use
  Company Number: SE-ROCHE-1186330

PATIENT
  Age: 75 Year
  Sex: Male

DRUGS (11)
  1. MABTHERA [Suspect]
     Indication: FOLLICLE CENTRE LYMPHOMA, FOLLICULAR GRADE I, II, III
     Route: 042
     Dates: start: 201110, end: 201202
  2. MABTHERA [Suspect]
     Dosage: DOSAGE REGIMEN 3 3
     Route: 042
     Dates: start: 201204, end: 201209
  3. MABTHERA [Suspect]
     Dosage: MAINTENANCE THERAPY
     Route: 042
     Dates: start: 201208, end: 201209
  4. CYCLOPHOSPHAMIDE [Concomitant]
     Route: 065
     Dates: start: 201110
  5. CYCLOPHOSPHAMIDE [Concomitant]
     Dosage: 6 CYCLE
     Route: 065
     Dates: start: 201202
  6. HYDROXYDAUNORUBICIN [Concomitant]
     Route: 065
     Dates: start: 201110
  7. HYDROXYDAUNORUBICIN [Concomitant]
     Dosage: 6 CYCLE
     Route: 065
     Dates: start: 201202
  8. ONCOVIN [Concomitant]
     Route: 065
     Dates: start: 201110
  9. ONCOVIN [Concomitant]
     Dosage: 6 CYCLE
     Route: 065
     Dates: start: 201202
  10. PREDNISOLONE [Concomitant]
     Dosage: 6 CYCLE
     Route: 065
     Dates: start: 201110
  11. PREDNISOLONE [Concomitant]
     Dosage: 6 CYCLE
     Route: 065
     Dates: start: 201202

REACTIONS (3)
  - Balance disorder [Not Recovered/Not Resolved]
  - Diplopia [Not Recovered/Not Resolved]
  - Progressive multifocal leukoencephalopathy [Not Recovered/Not Resolved]
